FAERS Safety Report 24636798 (Version 2)
Quarter: 2024Q4

REPORT INFORMATION
  Report Type: Spontaneous
  Country: CO (occurrence: CO)
  Receive Date: 20241119
  Receipt Date: 20241209
  Transmission Date: 20250115
  Serious: No
  Sender: PFIZER
  Company Number: CO-PFIZER INC-202400296827

PATIENT
  Age: 13 Year
  Sex: Male

DRUGS (1)
  1. GENOTROPIN [Suspect]
     Active Substance: SOMATROPIN
     Dosage: 1.4 MG, DAILY
     Route: 058

REACTIONS (2)
  - Device breakage [Unknown]
  - Expired device used [Unknown]
